FAERS Safety Report 15647456 (Version 2)
Quarter: 2018Q4

REPORT INFORMATION
  Report Type: Spontaneous
  Country: US (occurrence: US)
  Receive Date: 20181122
  Receipt Date: 20181127
  Transmission Date: 20190205
  Serious: Yes (Other)
  Sender: FDA-Public Use
  Company Number: US-SUN PHARMACEUTICAL INDUSTRIES LTD-2018R1-191656

PATIENT
  Age: 76 Year
  Sex: Male

DRUGS (1)
  1. SALBUTAMOL [Suspect]
     Active Substance: ALBUTEROL
     Indication: HYPERKALAEMIA
     Dosage: 12 MG OF ALBUTEROL SOLUTION FOR INHALATION
     Route: 042

REACTIONS (4)
  - Tachycardia [Recovering/Resolving]
  - Shock [Unknown]
  - Lactic acidosis [Unknown]
  - Product administration error [Unknown]
